FAERS Safety Report 10453144 (Version 4)
Quarter: 2015Q2

REPORT INFORMATION
  Report Type: Report from Study
  Country: US (occurrence: US)
  Receive Date: 20140915
  Receipt Date: 20150420
  Transmission Date: 20150821
  Serious: Yes (Hospitalization)
  Sender: FDA-Public Use
  Company Number: US-ALEXION PHARMACEUTICALS INC-A201403486

PATIENT

DRUGS (2)
  1. SOLIRIS [Suspect]
     Active Substance: ECULIZUMAB
     Dosage: 1200 MG, UNK
     Route: 042
     Dates: start: 20150310
  2. SOLIRIS [Suspect]
     Active Substance: ECULIZUMAB
     Indication: PAROXYSMAL NOCTURNAL HAEMOGLOBINURIA
     Dosage: UNK
     Route: 042
     Dates: start: 20140712

REACTIONS (12)
  - Discomfort [Unknown]
  - Blood lactate dehydrogenase abnormal [Recovered/Resolved]
  - Pancreatic enzymes increased [Unknown]
  - Jaundice [Recovered/Resolved]
  - Haemolysis [Recovered/Resolved]
  - Haemoglobinuria [Unknown]
  - Decreased appetite [Recovered/Resolved]
  - Haemoglobin abnormal [Recovered/Resolved]
  - Blood bilirubin abnormal [Recovered/Resolved]
  - Abdominal pain [Unknown]
  - Chromaturia [Unknown]
  - Incorrect dose administered [Unknown]

NARRATIVE: CASE EVENT DATE: 201410
